FAERS Safety Report 19388169 (Version 3)
Quarter: 2021Q2

REPORT INFORMATION
  Report Type: Report from Study
  Country: US (occurrence: US)
  Receive Date: 20210608
  Receipt Date: 20210623
  Transmission Date: 20210717
  Serious: Yes (Hospitalization, Other)
  Sender: FDA-Public Use
  Company Number: US-GLAXOSMITHKLINE-US2021119598

PATIENT
  Sex: Female

DRUGS (3)
  1. NIRAPARIB [Suspect]
     Active Substance: NIRAPARIB
     Dosage: 200 MG, QD
     Route: 048
  2. COVID?19 VACCINE NOS. [Suspect]
     Active Substance: COVID-19 VACCINE NOS
     Indication: COVID-19 PROPHYLAXIS
     Dosage: UNK
  3. NIRAPARIB [Suspect]
     Active Substance: NIRAPARIB
     Indication: OVARIAN CANCER
     Dosage: 200 MG, QD
     Route: 048
     Dates: start: 202011

REACTIONS (11)
  - Blood potassium decreased [Unknown]
  - Nausea [Not Recovered/Not Resolved]
  - Electrolyte imbalance [Recovered/Resolved]
  - Constipation [Not Recovered/Not Resolved]
  - Carbohydrate antigen 125 increased [Unknown]
  - Blood electrolytes decreased [Unknown]
  - Abdominal pain upper [Not Recovered/Not Resolved]
  - Clostridium difficile infection [Recovered/Resolved]
  - Blood sodium decreased [Unknown]
  - Blood magnesium decreased [Unknown]
  - Tumour marker increased [Unknown]
